FAERS Safety Report 20351776 (Version 1)
Quarter: 2022Q1

REPORT INFORMATION
  Report Type: Spontaneous
  Country: DE (occurrence: DE)
  Receive Date: 20220119
  Receipt Date: 20220119
  Transmission Date: 20220423
  Serious: Yes (Hospitalization)
  Sender: FDA-Public Use
  Company Number: DE-ABBVIE-22K-062-4238482-00

PATIENT
  Age: 68 Year
  Sex: Male

DRUGS (1)
  1. RINVOQ [Suspect]
     Active Substance: UPADACITINIB
     Indication: Ankylosing spondylitis
     Route: 048
     Dates: start: 202107, end: 202201

REACTIONS (6)
  - Swelling [Recovering/Resolving]
  - Surgery [Recovering/Resolving]
  - Tuberculosis [Recovering/Resolving]
  - Atelectasis [Unknown]
  - Gastrointestinal disorder [Unknown]
  - Lung disorder [Unknown]
